FAERS Safety Report 11986875 (Version 1)
Quarter: 2016Q1

REPORT INFORMATION
  Report Type: Spontaneous
  Country: US (occurrence: US)
  Receive Date: 20160202
  Receipt Date: 20160202
  Transmission Date: 20160526
  Serious: No
  Sender: FDA-Public Use
  Company Number: US-UCBSA-2015002850

PATIENT

DRUGS (3)
  1. KEPPRA [Suspect]
     Active Substance: LEVETIRACETAM
     Indication: EPILEPSY
     Dosage: UNK
  2. LAMOTRIGINE. [Concomitant]
     Active Substance: LAMOTRIGINE
     Indication: EPILEPSY
     Dosage: UNK
  3. LAMOTRIGINE. [Concomitant]
     Active Substance: LAMOTRIGINE
     Dosage: UNK (UPPED THE DOSE)

REACTIONS (8)
  - Somnolence [Unknown]
  - Fatigue [Unknown]
  - Amnesia [Unknown]
  - Seizure [Unknown]
  - Head discomfort [Unknown]
  - Feeling hot [Unknown]
  - Disturbance in attention [Unknown]
  - Confusional state [Unknown]
